FAERS Safety Report 4528115-8 (Version None)
Quarter: 2004Q4

REPORT INFORMATION
  Report Type: 
  Country: None (occurrence: None)
  Receive Date: 20041130
  Receipt Date: 20040727
  Transmission Date: 20050328
  Serious: No
  Sender: FDA-Public Use
  Company Number: WAES 0407USA02387

PATIENT
  Age: 45 Year
  Sex: Female

DRUGS (8)
  1. ZETIA [Suspect]
     Indication: HYPERCHOLESTEROLAEMIA
     Dosage: 10 MG/DAILY/PO
     Route: 048
     Dates: start: 20040719
  2. ACCUPRIL [Concomitant]
  3. ACTONEL [Concomitant]
  4. CALTRATE [Concomitant]
  5. CARDIZEM [Concomitant]
  6. HYDRODIURIL [Concomitant]
  7. SYNTHROID [Concomitant]
  8. INSULIN [Concomitant]

REACTIONS (1)
  - ABDOMINAL PAIN UPPER [None]
